FAERS Safety Report 9972347 (Version 1)
Quarter: 2014Q1

REPORT INFORMATION
  Report Type: Report from Study
  Country: US (occurrence: US)
  Receive Date: 20140306
  Receipt Date: 20140306
  Transmission Date: 20141002
  Serious: No
  Sender: FDA-Public Use
  Company Number: US-ABBVIE-13P-163-1151499-00

PATIENT
  Age: 48 Year
  Sex: Female

DRUGS (9)
  1. HUMIRA [Suspect]
     Indication: ANKYLOSING SPONDYLITIS
     Dates: start: 201212
  2. HUMIRA [Suspect]
     Dosage: DOSE CHANGED TO WEEKLY
  3. NAPROSYN [Concomitant]
     Indication: PAIN
  4. VICODIN [Concomitant]
     Indication: PAIN
     Dosage: 5/500 MG
  5. CHLORZOXAZONE [Concomitant]
     Indication: MUSCLE RELAXANT THERAPY
  6. LUNESTA [Concomitant]
     Indication: INSOMNIA
     Dosage: AT NIGHT
  7. CHROMIUM PICOLINATE [Concomitant]
     Indication: PRODUCT USED FOR UNKNOWN INDICATION
  8. SUPER OMEGA 3 [Concomitant]
     Indication: PRODUCT USED FOR UNKNOWN INDICATION
  9. OSTEO BI-FLEX [Concomitant]
     Indication: PRODUCT USED FOR UNKNOWN INDICATION

REACTIONS (4)
  - Arthralgia [Not Recovered/Not Resolved]
  - Back pain [Not Recovered/Not Resolved]
  - Myalgia [Not Recovered/Not Resolved]
  - Urticaria [Not Recovered/Not Resolved]
